FAERS Safety Report 13097032 (Version 2)
Quarter: 2017Q1

REPORT INFORMATION
  Report Type: Spontaneous
  Country: US (occurrence: US)
  Receive Date: 20170109
  Receipt Date: 20170126
  Transmission Date: 20170428
  Serious: No
  Sender: FDA-Public Use
  Company Number: US-PFIZER INC-2017008352

PATIENT
  Sex: Female

DRUGS (1)
  1. XELJANZ [Suspect]
     Active Substance: TOFACITINIB CITRATE
     Dosage: 5 MG TABLETS

REACTIONS (8)
  - Impaired driving ability [Unknown]
  - Arthralgia [Unknown]
  - Spinal pain [Unknown]
  - Grip strength decreased [Unknown]
  - Joint stiffness [Unknown]
  - Paraesthesia [Unknown]
  - Fatigue [Unknown]
  - Abnormal behaviour [Unknown]
